FAERS Safety Report 7200239 (Version 12)
Quarter: 2016Q2

REPORT INFORMATION
  Report Type: Report from Study
  Country: JP (occurrence: JP)
  Receive Date: 20091204
  Receipt Date: 20160429
  Transmission Date: 20160815
  Serious: Yes (Death, Hospitalization, Other)
  Sender: FDA-Public Use
  Company Number: PHHO2009JP14755

PATIENT
  Age: 72 Year
  Sex: Male
  Weight: 88 kg

DRUGS (15)
  1. ALISKIREN [Suspect]
     Active Substance: ALISKIREN
     Indication: CARDIAC FAILURE CHRONIC
     Dosage: 300 MG, UNK
     Route: 048
     Dates: start: 20090917, end: 20100808
  2. DIOVAN [Concomitant]
     Active Substance: VALSARTAN
     Indication: HYPERTENSION
     Dosage: 80 MG, QD
     Route: 065
  3. AMARYL [Concomitant]
     Active Substance: GLIMEPIRIDE
     Dosage: 0.5 MG, QD
     Route: 048
     Dates: start: 20100715
  4. COMPARATOR ENALAPRIL [Suspect]
     Active Substance: ENALAPRIL
     Indication: CARDIAC FAILURE
     Dosage: 5 MG, QD
     Route: 048
     Dates: start: 20090804, end: 20090819
  5. DIOVAN [Concomitant]
     Active Substance: VALSARTAN
     Dosage: 40 MG, QD
     Route: 048
     Dates: start: 20091225
  6. PARIET [Concomitant]
     Active Substance: RABEPRAZOLE SODIUM
     Indication: OESOPHAGEAL MUCOSAL HYPERPLASIA
     Dosage: 20 MG, QD
     Route: 048
     Dates: start: 20091201
  7. AMARYL [Concomitant]
     Active Substance: GLIMEPIRIDE
     Indication: DIABETES MELLITUS
     Dosage: 2 MG, QD
     Route: 048
  8. COMPARATOR ENALAPRIL [Suspect]
     Active Substance: ENALAPRIL
     Dosage: 10 MG, QD
     Route: 048
     Dates: start: 20090820
  9. ZYLORIC [Concomitant]
     Active Substance: ALLOPURINOL
     Indication: HYPERURICAEMIA
     Dosage: 100 MG, QD
     Route: 048
  10. ALISKIREN [Suspect]
     Active Substance: ALISKIREN
     Indication: CARDIAC FAILURE
     Dosage: 150 MG, QD
     Route: 048
     Dates: start: 20090903
  11. AMARYL [Concomitant]
     Active Substance: GLIMEPIRIDE
     Dosage: 1 MG, QD
     Route: 048
     Dates: start: 20091126
  12. PIMOBENDAN [Concomitant]
     Active Substance: PIMOBENDAN
     Indication: CARDIAC FAILURE
     Dosage: 1.25 MG, BID
     Route: 048
     Dates: start: 20090413
  13. ARTIST [Concomitant]
     Active Substance: CARVEDILOL
     Indication: CARDIAC FAILURE
     Dosage: 10 MG, BID
     Route: 065
     Dates: start: 20080725
  14. LASIX [Concomitant]
     Active Substance: FUROSEMIDE
     Indication: CARDIAC FAILURE
     Dosage: 40 MG, QD
     Route: 048
     Dates: start: 20060310
  15. MEDET [Concomitant]
     Active Substance: METFORMIN HYDROCHLORIDE
     Indication: DIABETES MELLITUS
     Dosage: 250 MG, BID
     Route: 048
     Dates: start: 20090913

REACTIONS (16)
  - Haemorrhagic infarction [Unknown]
  - Cortical laminar necrosis [Not Recovered/Not Resolved]
  - Gastric ulcer [Not Recovered/Not Resolved]
  - Decreased appetite [Recovered/Resolved]
  - Gastric mucosal lesion [Unknown]
  - Atrial fibrillation [Unknown]
  - Abdominal distension [Not Recovered/Not Resolved]
  - Gallbladder enlargement [Recovered/Resolved]
  - Scar [Not Recovered/Not Resolved]
  - Pleural effusion [Unknown]
  - Malaise [Recovered/Resolved]
  - Brain oedema [Not Recovered/Not Resolved]
  - Renal cyst [Not Recovered/Not Resolved]
  - Cardio-respiratory arrest [Fatal]
  - Respiratory arrest [Unknown]
  - Gastric adenoma [Unknown]

NARRATIVE: CASE EVENT DATE: 20091124
